FAERS Safety Report 8681431 (Version 2)
Quarter: 2018Q4

REPORT INFORMATION
  Report Type: Spontaneous
  Country: FR (occurrence: FR)
  Receive Date: 20120725
  Receipt Date: 20181119
  Transmission Date: 20190205
  Serious: Yes (Death, Hospitalization, Other)
  Sender: FDA-Public Use
  Company Number: FR-BAYER-2012-072682

PATIENT
  Age: 94 Year
  Sex: Male

DRUGS (26)
  1. ROCEPHINE [Suspect]
     Active Substance: CEFTRIAXONE SODIUM
     Indication: PRODUCT USED FOR UNKNOWN INDICATION
     Dosage: 2 G, BID
     Route: 058
     Dates: start: 20120622
  2. CALCIDOSE [Concomitant]
     Active Substance: CALCIUM CARBONATE
  3. RIVOTRIL [Concomitant]
     Active Substance: CLONAZEPAM
  4. CALCIPARINE [Concomitant]
     Active Substance: HEPARIN CALCIUM
  5. CALCIPARINE [Concomitant]
     Active Substance: HEPARIN CALCIUM
  6. SEROPRAM [Concomitant]
  7. VANCOMYCIN [Concomitant]
     Active Substance: VANCOMYCIN
     Dates: start: 20120619, end: 20120620
  8. VANCOMYCINE PCH [Suspect]
     Active Substance: VANCOMYCIN
     Dosage: UNK
     Dates: start: 20120619, end: 20120620
  9. EBIXA [Concomitant]
     Active Substance: MEMANTINE HYDROCHLORIDE
  10. SCHERIPROCT [CINCHOCAINE HYDROCHLORIDE,HEXACHLOROPHENE,PREDNISOLON [Concomitant]
  11. CALCID [CALCIUM CARBONATE,MAGNESIUM CARBONATE] [Concomitant]
  12. RIFADINE [Suspect]
     Active Substance: RIFAMPIN
     Dosage: 600 MG, UNK
     Route: 048
     Dates: start: 20120622
  13. DUPHALAC [Concomitant]
     Active Substance: LACTULOSE
  14. RIVOTRIL [Concomitant]
     Active Substance: CLONAZEPAM
  15. TAZOCILLINE [Suspect]
     Active Substance: PIPERACILLIN SODIUM\TAZOBACTAM SODIUM
     Dosage: UNK
     Dates: start: 20120619, end: 20120622
  16. IMOVANE [Concomitant]
     Active Substance: ZOPICLONE
  17. COVERSYL [Concomitant]
     Active Substance: PERINDOPRIL
  18. EBIXA [Concomitant]
     Active Substance: MEMANTINE HYDROCHLORIDE
  19. DOLIPRANE [Concomitant]
     Active Substance: ACETAMINOPHEN
  20. DISCOTRINE [Concomitant]
     Active Substance: NITROGLYCERIN
  21. IMOVANE [Concomitant]
     Active Substance: ZOPICLONE
  22. DUPHALAC [Concomitant]
     Active Substance: LACTULOSE
  23. DOLIPRANE [Concomitant]
     Active Substance: ACETAMINOPHEN
  24. PERINDOPRIL [Concomitant]
     Active Substance: PERINDOPRIL
  25. CIFLOX [Suspect]
     Active Substance: CIPROFLOXACIN
     Indication: PRODUCT USED FOR UNKNOWN INDICATION
     Dosage: UNK
     Route: 048
     Dates: start: 20120622, end: 20120703
  26. DISCOTRINE [Concomitant]
     Active Substance: NITROGLYCERIN

REACTIONS (8)
  - Pyrexia [None]
  - Pigmentation disorder [None]
  - Pruritus [None]
  - Rash maculo-papular [Not Recovered/Not Resolved]
  - Rash maculo-papular [None]
  - Arthritis infective [Fatal]
  - Rash maculo-papular [None]
  - Renal failure [Not Recovered/Not Resolved]

NARRATIVE: CASE EVENT DATE: 20120627
